FAERS Safety Report 8811661 (Version 1)
Quarter: 2012Q4

REPORT INFORMATION
  Report Type: 
  Country: US (occurrence: US)
  Receive Date: 20120927
  Receipt Date: 20120927
  Transmission Date: 20130627
  Serious: No
  Sender: FDA-Public Use
  Company Number: US-MUTUAL PHARMACEUTICAL COMPANY, INC.-BCTM20110062

PATIENT
  Sex: Female
  Weight: 54.48 kg

DRUGS (3)
  1. BACTRIM TABLETS [Suspect]
     Indication: DRUG USE FOR UNKNOWN INDICATION
     Route: 065
  2. IMPLANON [Suspect]
     Indication: CONTRACEPTION
     Route: 059
     Dates: start: 20100804
  3. AZITHROMYCIN [Suspect]
     Indication: DRUG USE FOR UNKNOWN INDICATION
     Route: 065

REACTIONS (4)
  - Drug interaction [Unknown]
  - Mood swings [Unknown]
  - Ovarian mass [Unknown]
  - Pregnancy with implant contraceptive [Unknown]
